FAERS Safety Report 14374544 (Version 2)
Quarter: 2018Q2

REPORT INFORMATION
  Report Type: Report from Study
  Country: ES (occurrence: ES)
  Receive Date: 20180111
  Receipt Date: 20180412
  Transmission Date: 20180711
  Serious: Yes (Hospitalization)
  Sender: FDA-Public Use
  Company Number: ES-MERCK KGAA-2039904

PATIENT
  Age: 71 Year
  Sex: Female

DRUGS (7)
  1. DAFLON (DIOSMIN/HESPERIDIN) [Suspect]
     Active Substance: DIOSMIN\HESPERIDIN
     Route: 065
  2. NOVOTHYROX [Suspect]
     Active Substance: LEVOTHYROXINE SODIUM
     Indication: PRODUCT USED FOR UNKNOWN INDICATION
     Route: 065
  3. ATORVASTATIN [Suspect]
     Active Substance: ATORVASTATIN
     Route: 065
  4. TELMISARTAN AND HYDROCHLOROTHIAZIDE 80 MG/25 MG [Suspect]
     Active Substance: HYDROCHLOROTHIAZIDE\TELMISARTAN
     Route: 065
  5. PANTOPRAZOLE [Suspect]
     Active Substance: PANTOPRAZOLE
     Route: 065
  6. LORAZEPAM. [Suspect]
     Active Substance: LORAZEPAM
     Route: 065
  7. CELECOXIB. [Suspect]
     Active Substance: CELECOXIB
     Route: 065

REACTIONS (14)
  - Feeling abnormal [Recovered/Resolved]
  - Hypertonia [Recovered/Resolved]
  - Diarrhoea [Recovered/Resolved]
  - Hypomagnesaemia [Recovered/Resolved]
  - Hypocalcaemia [Recovered/Resolved]
  - Nausea [Recovered/Resolved]
  - Dysgeusia [Recovered/Resolved]
  - Decreased appetite [Recovered/Resolved]
  - Muscular weakness [None]
  - Parosmia [Recovered/Resolved]
  - Confusional state [Recovered/Resolved]
  - Asthenia [Recovered/Resolved]
  - Depressed level of consciousness [Recovered/Resolved]
  - Vomiting [Recovered/Resolved]
